FAERS Safety Report 7807941-3 (Version None)
Quarter: 2011Q4

REPORT INFORMATION
  Report Type: 
  Country: None (occurrence: None)
  Receive Date: 20111011
  Receipt Date: 20111011
  Transmission Date: 20120403
  Serious: No
  Sender: FDA-Public Use
  Company Number: None

PATIENT
  Age: 43 Year
  Sex: Female

DRUGS (1)
  1. VENLAFAXINE [Suspect]
     Indication: DEPRESSION
     Dosage: 75MG
     Route: 048
     Dates: start: 20110812, end: 20110925

REACTIONS (13)
  - PRURITUS [None]
  - MYALGIA [None]
  - BALANCE DISORDER [None]
  - FEELING ABNORMAL [None]
  - PARAESTHESIA [None]
  - HYPOAESTHESIA [None]
  - DIZZINESS [None]
  - SCRATCH [None]
  - ASTHENIA [None]
  - TINNITUS [None]
  - THINKING ABNORMAL [None]
  - HEART RATE INCREASED [None]
  - HYPERTENSION [None]
